FAERS Safety Report 25196000 (Version 2)
Quarter: 2025Q2

REPORT INFORMATION
  Report Type: Spontaneous
  Country: JP (occurrence: JP)
  Receive Date: 20250415
  Receipt Date: 20250521
  Transmission Date: 20250717
  Serious: Yes (Hospitalization, Other)
  Sender: GLAXOSMITHKLINE
  Company Number: JP-GSKJP-JP2025JPN041806AA

PATIENT

DRUGS (2)
  1. LAMICTAL [Suspect]
     Active Substance: LAMOTRIGINE
     Indication: Bipolar disorder
  2. DIAZEPAM [Concomitant]
     Active Substance: DIAZEPAM
     Indication: Psychiatric symptom

REACTIONS (11)
  - Serotonin syndrome [Unknown]
  - Restlessness [Recovering/Resolving]
  - Hyperhidrosis [Unknown]
  - Vomiting [Unknown]
  - Psychiatric symptom [Recovering/Resolving]
  - Agitation [Unknown]
  - Confusional state [Unknown]
  - Hypertonia [Unknown]
  - Communication disorder [Recovered/Resolved]
  - Hypertriglyceridaemia [Recovering/Resolving]
  - Toxicity to various agents [Recovering/Resolving]
